FAERS Safety Report 11403067 (Version 1)
Quarter: 2015Q3

REPORT INFORMATION
  Report Type: Spontaneous
  Country: US (occurrence: US)
  Receive Date: 20150821
  Receipt Date: 20150821
  Transmission Date: 20151125
  Serious: No
  Sender: FDA-Public Use
  Company Number: US-ROCHE-1333621

PATIENT
  Sex: Male

DRUGS (3)
  1. REBETOL [Suspect]
     Active Substance: RIBAVIRIN
     Indication: CHRONIC HEPATITIS C
     Dosage: DIVIDED DOSES.
     Route: 065
     Dates: start: 20140111
  2. PEGASYS [Suspect]
     Active Substance: PEGINTERFERON ALFA-2A
     Indication: CHRONIC HEPATITIS C
     Route: 058
     Dates: start: 20140111
  3. SOFOSBUVIR [Concomitant]
     Active Substance: SOFOSBUVIR
     Indication: CHRONIC HEPATITIS C
     Route: 065

REACTIONS (9)
  - Fatigue [Unknown]
  - Somnolence [Unknown]
  - Pruritus generalised [Unknown]
  - Malaise [Unknown]
  - Chills [Unknown]
  - Headache [Unknown]
  - Poor quality sleep [Unknown]
  - Rhinorrhoea [Unknown]
  - Injection site haemorrhage [Unknown]
